FAERS Safety Report 9227798 (Version 1)
Quarter: 2013Q2

REPORT INFORMATION
  Report Type: Report from Study
  Country: FR (occurrence: FR)
  Receive Date: 20130412
  Receipt Date: 20130412
  Transmission Date: 20140414
  Serious: Yes (Other)
  Sender: FDA-Public Use
  Company Number: PHHO2011FR03568

PATIENT
  Age: 62 Year
  Sex: Female
  Weight: 59 kg

DRUGS (9)
  1. NEORAL [Suspect]
     Indication: LIVER TRANSPLANT
     Dosage: 25 MG, BID
     Route: 048
     Dates: start: 20100317
  2. PEGASYS [Suspect]
     Dosage: 180 MG, QW
     Dates: start: 20100503, end: 20100628
  3. COPEGUS [Suspect]
     Dosage: 1000 MG/DAY
     Dates: start: 20100503, end: 20100628
  4. LOXEN [Concomitant]
     Indication: HYPERTENSION
     Dosage: 50 MG, BID
     Dates: start: 20080221
  5. EFFEXOR [Concomitant]
     Indication: DEPRESSION
     Dosage: 75 MG, QD
     Dates: start: 20080430
  6. STRESAM [Concomitant]
     Indication: DEPRESSION
     Dosage: UNK
     Dates: start: 20091026
  7. ACTONEL [Concomitant]
     Dosage: UNK
     Dates: start: 20080221
  8. KARDEGIC [Concomitant]
     Dosage: 160 MG, QD
     Dates: start: 20100316
  9. FURADANTIN [Concomitant]
     Indication: PROPHYLAXIS
     Dosage: UNK
     Dates: start: 20100924

REACTIONS (3)
  - Escherichia urinary tract infection [Recovered/Resolved]
  - Dementia Alzheimer^s type [Not Recovered/Not Resolved]
  - Balance disorder [Not Recovered/Not Resolved]
